FAERS Safety Report 4543916-8 (Version None)
Quarter: 2005Q1

REPORT INFORMATION
  Report Type: 
  Country: None (occurrence: None)
  Receive Date: 20050103
  Receipt Date: 20031020
  Transmission Date: 20050727
  Serious: Yes (Hospitalization, Disabling, Other)
  Sender: FDA-Public Use
  Company Number: GXKR2003GB00518

PATIENT
  Age: 51 Year
  Sex: Male
  Weight: 50 kg

DRUGS (12)
  1. METOCLOPRAMIDE [Suspect]
     Indication: NAUSEA
     Dosage: 10 MG, TID, ORAL
     Route: 048
     Dates: start: 20030701, end: 20030916
  2. OLANZAPINE [Suspect]
     Indication: MANIA
     Dosage: 15 MG, QD, ORAL
     Route: 048
     Dates: start: 20021001, end: 20030916
  3. RITONAVIR [Concomitant]
  4. LAMIVUDINE (LAMIVUDINE) [Concomitant]
  5. AZITHROMYCIN [Concomitant]
  6. FLUCONAZOLE [Concomitant]
  7. METHADONE (METHADONE) [Concomitant]
  8. LANSOPRAZOLE [Concomitant]
  9. LACTULOSE [Concomitant]
  10. THIAMINE (THIAMINE) [Concomitant]
  11. TENOFOVIR DISOPROXIL FUMARATE (TENOFOVIR DISOPROXIL FUMARATE) [Concomitant]
  12. FOSAMPRENAVIR (FOSAMPRENAVIR) [Concomitant]

REACTIONS (7)
  - AKATHISIA [None]
  - ANAEMIA [None]
  - COORDINATION ABNORMAL [None]
  - LEUKOPENIA [None]
  - MUSCLE RIGIDITY [None]
  - SOMNOLENCE [None]
  - THROMBOCYTOPENIA [None]
